FAERS Safety Report 7493948-5 (Version None)
Quarter: 2011Q2

REPORT INFORMATION
  Report Type: 
  Country: None (occurrence: None)
  Receive Date: 20110520
  Receipt Date: 20110519
  Transmission Date: 20111010
  Serious: Yes (Other)
  Sender: FDA-Public Use
  Company Number: CN-PFIZER INC-2011107477

PATIENT
  Age: 51 Year
  Sex: Male

DRUGS (2)
  1. LIPITOR [Suspect]
     Indication: CORONARY ARTERY DISEASE
     Dosage: 20 MG, 1X/DAY
     Dates: start: 20100101, end: 20110508
  2. NORVASC [Suspect]
     Indication: CORONARY ARTERY DISEASE
     Dosage: 5 MG, 1X/DAY
     Dates: start: 20100101, end: 20110514

REACTIONS (6)
  - URINARY INCONTINENCE [None]
  - SWELLING [None]
  - FAECAL INCONTINENCE [None]
  - RENAL FAILURE ACUTE [None]
  - BLOOD CREATINE PHOSPHOKINASE [None]
  - BACK PAIN [None]
